FAERS Safety Report 6210625-9 (Version None)
Quarter: 2009Q2

REPORT INFORMATION
  Report Type: 
  Country: None (occurrence: None)
  Receive Date: 20090528
  Receipt Date: 20090511
  Transmission Date: 20091009
  Serious: Yes (Hospitalization)
  Sender: FDA-Public Use
  Company Number: 2009S1008314

PATIENT
  Age: 19 Month
  Sex: Female

DRUGS (1)
  1. FENTANYL TRANSDERMAL SYSTEM [Suspect]
     Dosage: 25 UG; EVERY HOUR; TRANSDERMAL
     Route: 062

REACTIONS (9)
  - APNOEA [None]
  - BLOOD PRESSURE DIASTOLIC DECREASED [None]
  - BODY TEMPERATURE DECREASED [None]
  - CYANOSIS [None]
  - HEART RATE INCREASED [None]
  - LEUKOENCEPHALOPATHY [None]
  - MIOSIS [None]
  - OVERDOSE [None]
  - UNRESPONSIVE TO STIMULI [None]
